FAERS Safety Report 5162979-2 (Version None)
Quarter: 2006Q4

REPORT INFORMATION
  Report Type: 
  Country: None (occurrence: None)
  Receive Date: 20061201
  Receipt Date: 20061124
  Transmission Date: 20070319
  Serious: Yes (Hospitalization)
  Sender: FDA-Public Use
  Company Number: IN-BRISTOL-MYERS SQUIBB COMPANY-13593272

PATIENT
  Age: 65 Year
  Sex: Male
  Weight: 54 kg

DRUGS (7)
  1. COAPROVEL [Suspect]
     Indication: HYPERTENSION
     Route: 048
     Dates: start: 20061112, end: 20061120
  2. FESTAL [Concomitant]
     Indication: LAXATIVE SUPPORTIVE CARE
  3. ONDANSETRON [Concomitant]
     Indication: VOMITING
     Route: 030
  4. ALPRAZOLAM (GEN) [Concomitant]
  5. MELATONIN [Concomitant]
  6. ANTACID TAB [Concomitant]
     Dates: start: 20061112, end: 20061120
  7. DROTAVERINE [Concomitant]
     Indication: PAIN

REACTIONS (2)
  - ANOREXIA [None]
  - VISION BLURRED [None]
